FAERS Safety Report 17888526 (Version 5)
Quarter: 2020Q4

REPORT INFORMATION
  Report Type: Report from Study
  Country: JP (occurrence: JP)
  Receive Date: 20200612
  Receipt Date: 20201023
  Transmission Date: 20210113
  Serious: Yes (Death)
  Sender: FDA-Public Use
  Company Number: JP-ASTRAZENECA-2020SE73147

PATIENT
  Age: 68 Year
  Sex: Female
  Weight: 30 kg

DRUGS (1)
  1. IMFINZI [Suspect]
     Active Substance: DURVALUMAB
     Indication: NON-SMALL CELL LUNG CANCER
     Route: 041
     Dates: start: 20200413, end: 20200428

REACTIONS (2)
  - Lung neoplasm malignant [Fatal]
  - Radiation pneumonitis [Fatal]

NARRATIVE: CASE EVENT DATE: 20200519
